FAERS Safety Report 9222841 (Version 1)
Quarter: 2013Q2

REPORT INFORMATION
  Report Type: Spontaneous
  Country: TR (occurrence: TR)
  Receive Date: 20130410
  Receipt Date: 20130410
  Transmission Date: 20140414
  Serious: Yes (Hospitalization, Other)
  Sender: FDA-Public Use
  Company Number: TR-ROXANE LABORATORIES, INC.-2012-RO-01610RO

PATIENT
  Age: 85 Year
  Sex: Male

DRUGS (6)
  1. DONEPEZIL HYDROCHLORIDE [Suspect]
     Indication: DEMENTIA ALZHEIMER^S TYPE
     Dosage: 5 MG
  2. TRANDOLAPRIL [Concomitant]
     Indication: HYPERTENSION
  3. TRANDOLAPRIL [Concomitant]
     Indication: RENAL FAILURE CHRONIC
  4. ACETYLSALICYLIC ACID [Concomitant]
     Indication: CORONARY ARTERY DISEASE
     Dosage: 100 MG
  5. ISOSORBIDE MONONITRATE [Concomitant]
     Indication: CORONARY ARTERY DISEASE
     Dosage: 40 MG
  6. TRIMTAZIDINE [Concomitant]
     Indication: CORONARY ARTERY DISEASE
     Dosage: 60 MG

REACTIONS (3)
  - Atrioventricular block second degree [Recovered/Resolved]
  - Bradyarrhythmia [Recovered/Resolved]
  - Syncope [Recovered/Resolved]
